FAERS Safety Report 6337679-3 (Version None)
Quarter: 2009Q3

REPORT INFORMATION
  Report Type: 
  Country: None (occurrence: None)
  Receive Date: 20090902
  Receipt Date: 20090818
  Transmission Date: 20100115
  Serious: Yes (Hospitalization)
  Sender: FDA-Public Use
  Company Number: US-BRISTOL-MYERS SQUIBB COMPANY-14746044

PATIENT
  Age: 39 Year
  Sex: Female

DRUGS (1)
  1. DASATINIB [Suspect]
     Indication: CHRONIC MYELOID LEUKAEMIA
     Dosage: INTERRUPTED ON 7AUG08 1DF=180[UNITS NI]
     Route: 048
     Dates: start: 20060309

REACTIONS (2)
  - DEHYDRATION [None]
  - VOMITING [None]
